FAERS Safety Report 13214152 (Version 1)
Quarter: 2017Q1

REPORT INFORMATION
  Report Type: Spontaneous
  Country: FR (occurrence: FR)
  Receive Date: 20170210
  Receipt Date: 20170210
  Transmission Date: 20170428
  Serious: Yes (Hospitalization)
  Sender: FDA-Public Use
  Company Number: FR-SA-2017SA020643

PATIENT
  Age: 70 Year
  Sex: Male
  Weight: 72.5 kg

DRUGS (4)
  1. STILNOX [Suspect]
     Active Substance: ZOLPIDEM TARTRATE
     Indication: INSOMNIA
     Dosage: FILM COATED DIVISIBLE TABLET?STOP DATE 2015
     Route: 048
     Dates: start: 20151211
  2. COVERSYL [Concomitant]
     Active Substance: PERINDOPRIL
     Indication: HYPERTENSION
     Dosage: FILM COATED DIVISBLE TABLET
     Route: 048
     Dates: start: 19980101
  3. STILNOX [Suspect]
     Active Substance: ZOLPIDEM TARTRATE
     Indication: INSOMNIA
     Dosage: FILM COATED DIVISIBLE TABLET
     Route: 048
     Dates: start: 20140401, end: 20141211
  4. STALEVO [Concomitant]
     Active Substance: CARBIDOPA\ENTACAPONE\LEVODOPA
     Indication: PARKINSON^S DISEASE
     Dosage: 150 MG+37.5 MG+200 MG
     Route: 048
     Dates: start: 20150702

REACTIONS (2)
  - Balance disorder [Recovered/Resolved]
  - Nystagmus [Not Recovered/Not Resolved]

NARRATIVE: CASE EVENT DATE: 20151212
